FAERS Safety Report 13537479 (Version 1)
Quarter: 2017Q2

REPORT INFORMATION
  Report Type: Spontaneous
  Country: US (occurrence: US)
  Receive Date: 20170511
  Receipt Date: 20170511
  Transmission Date: 20170830
  Serious: Yes (Other)
  Sender: FDA-Public Use
  Company Number: US-TEVA-766923USA

PATIENT
  Sex: Female

DRUGS (1)
  1. DIAZEPAM. [Suspect]
     Active Substance: DIAZEPAM
     Dates: start: 20170503

REACTIONS (13)
  - Oral discomfort [Unknown]
  - Drug hypersensitivity [Unknown]
  - Erythema [Unknown]
  - Pain [Unknown]
  - Hot flush [Unknown]
  - Feeling abnormal [Unknown]
  - Stool heavy metal positive [Unknown]
  - Product odour abnormal [Unknown]
  - Oxygen saturation decreased [Unknown]
  - Dyspnoea [Unknown]
  - Malaise [Unknown]
  - Tongue discomfort [Unknown]
  - Product taste abnormal [Unknown]

NARRATIVE: CASE EVENT DATE: 20170504
